FAERS Safety Report 6399431-2 (Version None)
Quarter: 2009Q4

REPORT INFORMATION
  Report Type: 
  Country: None (occurrence: None)
  Receive Date: 20091014
  Receipt Date: 20090930
  Transmission Date: 20100525
  Serious: Yes (Hospitalization)
  Sender: FDA-Public Use
  Company Number: PHHY2009CO42295

PATIENT
  Sex: Male

DRUGS (1)
  1. EXJADE [Suspect]
     Dosage: 1 TABLET/DAY
     Route: 048
     Dates: start: 20090927

REACTIONS (3)
  - ASTHENIA [None]
  - CONCOMITANT DISEASE AGGRAVATED [None]
  - SYNCOPE [None]
